FAERS Safety Report 9632597 (Version 1)
Quarter: 2013Q4

REPORT INFORMATION
  Report Type: Spontaneous
  Country: GB (occurrence: GB)
  Receive Date: 20131018
  Receipt Date: 20131018
  Transmission Date: 20140711
  Serious: Yes (Other)
  Sender: FDA-Public Use
  Company Number: GB-PFIZER INC-2013297230

PATIENT
  Age: 67 Year
  Sex: Female

DRUGS (2)
  1. LUSTRAL [Suspect]
     Indication: ANXIETY
     Dosage: 100 MG, UNK
  2. LUSTRAL [Suspect]
     Indication: DEPRESSION

REACTIONS (1)
  - Tooth infection [Unknown]
